FAERS Safety Report 11415589 (Version 3)
Quarter: 2017Q2

REPORT INFORMATION
  Report Type: Spontaneous
  Country: DE (occurrence: DE)
  Receive Date: 20150825
  Receipt Date: 20170403
  Transmission Date: 20170829
  Serious: Yes (Other)
  Sender: FDA-Public Use
  Company Number: DE-SUN PHARMACEUTICAL INDUSTRIES LTD-2015R1-102146

PATIENT
  Sex: Female

DRUGS (5)
  1. CISPLATIN. [Suspect]
     Active Substance: CISPLATIN
     Indication: OVARIAN CANCER
     Dosage: UNK
     Route: 033
  2. DOXORUBICIN [Suspect]
     Active Substance: DOXORUBICIN
     Indication: OVARIAN CANCER
     Dosage: 1.5 MG/M2, 13 CYCLES (EVERY 5-12 WEEKS OF PIPAC; AT 12 MMHG)
     Route: 033
     Dates: start: 201410
  3. CARBOPLATIN. [Concomitant]
     Active Substance: CARBOPLATIN
     Indication: OVARIAN CANCER
     Dosage: CYCLICAL (ADDED ON DAY 2 AFTER EACH PIPAC)
     Route: 042
     Dates: start: 201605
  4. TAMOXIFEN [Concomitant]
     Active Substance: TAMOXIFEN
     Indication: OVARIAN CANCER
     Dosage: 20 MG, QD
     Route: 065
  5. CISPLATIN. [Suspect]
     Active Substance: CISPLATIN
     Dosage: 7.5 MG/M2, 13 CYCLES (EVERY 5-12 WEEKS OF PIPAC; AT 12 MMHG)
     Route: 033
     Dates: start: 201410

REACTIONS (5)
  - Off label use [Unknown]
  - Therapeutic response decreased [Unknown]
  - Pyrexia [Unknown]
  - Pleural effusion [Unknown]
  - Abdominal pain [Unknown]
